FAERS Safety Report 22017938 (Version 1)
Quarter: 2023Q1

REPORT INFORMATION
  Report Type: Report from Study
  Country: US (occurrence: US)
  Receive Date: 20230221
  Receipt Date: 20230221
  Transmission Date: 20230417
  Serious: Yes (Life-Threatening)
  Sender: FDA-Public Use
  Company Number: US-ABBVIE-18P-163-2329126-00

PATIENT
  Age: 65 Year
  Sex: Male

DRUGS (14)
  1. HUMIRA [Suspect]
     Active Substance: ADALIMUMAB
     Indication: Psoriasis
     Route: 058
     Dates: start: 20100927, end: 20120130
  2. SYNTHROID [Concomitant]
     Active Substance: LEVOTHYROXINE SODIUM
     Indication: Hypothyroidism
     Dates: start: 2005
  3. CRESTOR [Concomitant]
     Active Substance: ROSUVASTATIN CALCIUM
     Indication: Coronary artery disease
     Dates: start: 2005
  4. TRIAMCINOLONE [Concomitant]
     Active Substance: TRIAMCINOLONE
     Indication: Psoriasis
     Dosage: TIME INTERVAL: AS NECESSARY
     Dates: start: 20040113
  5. TRIAMCINOLONE [Concomitant]
     Active Substance: TRIAMCINOLONE
     Indication: Psoriasis
     Dosage: TIME INTERVAL: AS NECESSARY
     Dates: start: 20040113
  6. ASPIRIN [Concomitant]
     Active Substance: ASPIRIN
     Indication: Poor peripheral circulation
     Dates: start: 2005
  7. VITAMIN D [Concomitant]
     Active Substance: VITAMIN D NOS
     Indication: Vitamin D deficiency
     Dates: start: 20120304
  8. FISH OIL [Concomitant]
     Active Substance: FISH OIL
     Indication: Blood cholesterol
     Dates: start: 20120304
  9. LEVOTHYROXINE [Concomitant]
     Active Substance: LEVOTHYROXINE
     Indication: Hypothyroidism
     Dates: start: 20120304
  10. ALBUTEROL [Concomitant]
     Active Substance: ALBUTEROL
     Indication: Chronic obstructive pulmonary disease
     Dosage: 4-6 HRS AS NEEDED, 1 INHALER
     Dates: start: 20120304
  11. DESONATE [Concomitant]
     Active Substance: DESONIDE
     Indication: Psoriasis
     Dosage: TIME INTERVAL: AS NECESSARY: 1 UNIT?(SAMPLES)
     Dates: start: 20111007
  12. CIMZIA [Concomitant]
     Active Substance: CERTOLIZUMAB PEGOL
     Indication: Psoriasis
     Dosage: Q MONTH
     Dates: start: 20150821, end: 20170222
  13. CIMZIA [Concomitant]
     Active Substance: CERTOLIZUMAB PEGOL
     Indication: Psoriasis
     Dosage: Q MONTH
     Dates: start: 20171220
  14. COSENTYX [Concomitant]
     Active Substance: SECUKINUMAB
     Indication: Psoriasis
     Dates: start: 20171220

REACTIONS (1)
  - Tonsil cancer [Not Recovered/Not Resolved]

NARRATIVE: CASE EVENT DATE: 20170419
